FAERS Safety Report 9226906 (Version 3)
Quarter: 2014Q3

REPORT INFORMATION
  Report Type: Report from Study
  Country: US (occurrence: US)
  Receive Date: 20130412
  Receipt Date: 20140717
  Transmission Date: 20150326
  Serious: Yes (Hospitalization)
  Sender: FDA-Public Use
  Company Number: US-JNJFOC-20130404275

PATIENT
  Age: 54 Year
  Sex: Female
  Weight: 66.8 kg

DRUGS (7)
  1. CELEXA [Concomitant]
     Active Substance: CITALOPRAM HYDROBROMIDE
     Route: 065
  2. APAP/DIPHENHYDRAMINE [Suspect]
     Active Substance: ACETAMINOPHEN\DIPHENHYDRAMINE
     Indication: PRODUCT USED FOR UNKNOWN INDICATION
     Route: 048
     Dates: start: 20130406
  3. TRAMADOL [Suspect]
     Active Substance: TRAMADOL
     Indication: PRODUCT USED FOR UNKNOWN INDICATION
     Route: 048
     Dates: start: 20130406
  4. RISPERDAL [Concomitant]
     Active Substance: RISPERIDONE
     Route: 065
  5. LITHIUM [Concomitant]
     Active Substance: LITHIUM CARBONATE
     Route: 065
  6. ETHANOL [Suspect]
     Active Substance: ALCOHOL
     Indication: PRODUCT USED FOR UNKNOWN INDICATION
     Route: 048
     Dates: start: 20130406
  7. AMBIEN [Concomitant]
     Active Substance: ZOLPIDEM TARTRATE
     Route: 065

REACTIONS (3)
  - Overdose [Recovered/Resolved]
  - Somnolence [Recovered/Resolved]
  - Self injurious behaviour [Recovered/Resolved]

NARRATIVE: CASE EVENT DATE: 20130406
